FAERS Safety Report 6711515-5 (Version None)
Quarter: 2010Q2

REPORT INFORMATION
  Report Type: 
  Country: None (occurrence: None)
  Receive Date: 20100505
  Receipt Date: 20100421
  Transmission Date: 20101027
  Serious: Yes (Hospitalization)
  Sender: FDA-Public Use
  Company Number: PHHY2010MX25128

PATIENT
  Age: 78 Year
  Sex: Female
  Weight: 65 kg

DRUGS (2)
  1. DIOVAN HCT [Suspect]
     Indication: HYPERTENSION
     Dosage: 1 TABLET (160/12.5MG) PER DAY
     Dates: start: 20100101
  2. METOPROLOL [Concomitant]
     Indication: HYPERTENSION
     Dosage: TABLET (0.5) PER DAY
     Dates: start: 20100101

REACTIONS (2)
  - HYPOTENSION [None]
  - RENAL DISORDER [None]
